FAERS Safety Report 19173901 (Version 3)
Quarter: 2021Q2

REPORT INFORMATION
  Report Type: Spontaneous
  Country: US (occurrence: US)
  Receive Date: 20210423
  Receipt Date: 20210525
  Transmission Date: 20210717
  Serious: No
  Sender: FDA-Public Use
  Company Number: NVSC2021US090192

PATIENT
  Sex: Female

DRUGS (1)
  1. TOBRADEX [Suspect]
     Active Substance: DEXAMETHASONE\TOBRAMYCIN
     Indication: PRODUCT USED FOR UNKNOWN INDICATION
     Dosage: 0.3 %, TID
     Route: 065

REACTIONS (6)
  - Adverse drug reaction [Unknown]
  - Swelling [Unknown]
  - Swelling of eyelid [Unknown]
  - Eyelid irritation [Unknown]
  - Blepharitis [Unknown]
  - Erythema [Unknown]
